FAERS Safety Report 5670814-9 (Version None)
Quarter: 2008Q2

REPORT INFORMATION
  Report Type: 
  Country: None (occurrence: None)
  Receive Date: 20080305
  Receipt Date: 20071120
  Transmission Date: 20081010
  Serious: Yes (Life-Threatening, Hospitalization)
  Sender: FDA-Public Use
  Company Number: BDI-010316

PATIENT
  Age: 65 Year
  Sex: Male
  Weight: 79 kg

DRUGS (3)
  1. ISOVUE-370 [Suspect]
     Indication: ANGIOGRAM
     Dosage: 80ML ONCE INTRAVENOUS
     Route: 042
     Dates: start: 20071008, end: 20071008
  2. NITROGLYCERIN [Concomitant]
  3. LOPRESSOR [Concomitant]

REACTIONS (1)
  - ANAPHYLACTIC SHOCK [None]
